FAERS Safety Report 9124646 (Version 1)
Quarter: 2013Q1

REPORT INFORMATION
  Report Type: Spontaneous
  Country: US (occurrence: US)
  Receive Date: 20130116
  Receipt Date: 20130116
  Transmission Date: 20140127
  Serious: Yes (Death)
  Sender: FDA-Public Use
  Company Number: US-ROXANE LABORATORIES, INC.-2013-RO-00056RO

PATIENT
  Age: 34 Year
  Sex: Male

DRUGS (5)
  1. ALPRAZOLAM INTENSOL [ORAL SOLUTION (CONCENTRATE)] 1 MG/ML [Suspect]
  2. KEPPRA [Suspect]
  3. FLUOXETINE [Suspect]
  4. LAMOTRIGINE [Suspect]
  5. OXYCODONE [Suspect]

REACTIONS (2)
  - Intentional overdose [Fatal]
  - Completed suicide [Fatal]
